FAERS Safety Report 25218265 (Version 1)
Quarter: 2025Q2

REPORT INFORMATION
  Report Type: Spontaneous
  Country: US (occurrence: US)
  Receive Date: 20250421
  Receipt Date: 20250421
  Transmission Date: 20250717
  Serious: No
  Sender: APOTEX
  Company Number: US-APOTEX-2025AP004426

PATIENT
  Age: 34 Year
  Sex: Female

DRUGS (4)
  1. BUDESONIDE [Suspect]
     Active Substance: BUDESONIDE
     Indication: Product used for unknown indication
     Route: 065
  2. ETHYLHEXYLGLYCERIN [Suspect]
     Active Substance: ETHYLHEXYLGLYCERIN
     Indication: Product used for unknown indication
     Route: 065
  3. AMCINONIDE [Suspect]
     Active Substance: AMCINONIDE
     Indication: Product used for unknown indication
     Route: 065
  4. LIMONENE, (+/-)- [Suspect]
     Active Substance: LIMONENE, (+/-)-
     Indication: Product used for unknown indication
     Route: 065

REACTIONS (1)
  - Allergy test positive [Unknown]
